FAERS Safety Report 5393415-9 (Version None)
Quarter: 2007Q3

REPORT INFORMATION
  Report Type: 
  Country: None (occurrence: None)
  Receive Date: 20070720
  Receipt Date: 20070720
  Transmission Date: 20080115
  Serious: Yes (Other)
  Sender: FDA-Public Use
  Company Number: None

PATIENT
  Sex: Male
  Weight: 81.6475 kg

DRUGS (1)
  1. ZYPREXA [Suspect]
     Indication: PARANOIA
     Dosage: 40MG 2 20MG 2 DAY

REACTIONS (6)
  - CHOLELITHIASIS [None]
  - DIABETES MELLITUS [None]
  - EYE DISORDER [None]
  - INJURY [None]
  - MENTAL DISORDER [None]
  - THINKING ABNORMAL [None]
